FAERS Safety Report 9774462 (Version 3)
Quarter: 2014Q2

REPORT INFORMATION
  Report Type: Spontaneous
  Country: DE (occurrence: DE)
  Receive Date: 20131220
  Receipt Date: 20140617
  Transmission Date: 20141212
  Serious: Yes (Hospitalization)
  Sender: FDA-Public Use
  Company Number: DE-VERTEX PHARMACEUTICALS INC-2013-011927

PATIENT
  Sex: 0

DRUGS (5)
  1. INCIVO [Suspect]
     Indication: CHRONIC HEPATITIS C
     Dosage: 2250 MG, QD
     Route: 065
  2. PEGINTERFERON ALFA-2A [Suspect]
     Indication: CHRONIC HEPATITIS C
     Dosage: 135 ?G, QW
  3. PEGINTERFERON ALFA-2A [Suspect]
     Dosage: 180 ?G, QW
  4. RIBAVIRIN [Suspect]
     Indication: CHRONIC HEPATITIS C
     Dosage: UNK, QW
  5. RIBAVIRIN [Suspect]
     Dosage: 200 TO2800MG
     Route: 065

REACTIONS (16)
  - Gastroenteritis norovirus [Unknown]
  - Osteoporotic fracture [Unknown]
  - Cerebrovascular accident [Unknown]
  - Hypertensive crisis [Unknown]
  - Anaemia [Unknown]
  - Ulcer [Unknown]
  - Influenza like illness [Unknown]
  - Off label use [Unknown]
  - Cough [Unknown]
  - Hepatitis C [Unknown]
  - Asthenia [Unknown]
  - Dry skin [Unknown]
  - Pruritus [Unknown]
  - Diarrhoea [Unknown]
  - Anorectal discomfort [Unknown]
  - Rash [Unknown]
